FAERS Safety Report 19773518 (Version 1)
Quarter: 2021Q3

REPORT INFORMATION
  Report Type: Spontaneous
  Country: CN (occurrence: CN)
  Receive Date: 20210901
  Receipt Date: 20210901
  Transmission Date: 20211014
  Serious: Yes (Hospitalization)
  Sender: FDA-Public Use
  Company Number: CN-PFIZER INC-202101098671

PATIENT
  Age: 32 Year
  Sex: Female
  Weight: 42 kg

DRUGS (2)
  1. METHOTREXATE. [Suspect]
     Active Substance: METHOTREXATE
     Indication: BONE SARCOMA
     Dosage: 14 G, 1X/DAY
     Route: 041
     Dates: start: 20210707, end: 20210707
  2. VINDESINE SULFATE [Suspect]
     Active Substance: VINDESINE SULFATE
     Indication: BONE SARCOMA
     Dosage: 3 MG, 1X/DAY
     Route: 041
     Dates: start: 20210707, end: 20210707

REACTIONS (2)
  - Myelosuppression [Recovering/Resolving]
  - Granulocyte count decreased [Recovering/Resolving]

NARRATIVE: CASE EVENT DATE: 20210719
